FAERS Safety Report 18669295 (Version 2)
Quarter: 2021Q1

REPORT INFORMATION
  Report Type: Spontaneous
  Country: CA (occurrence: CA)
  Receive Date: 20201228
  Receipt Date: 20210115
  Transmission Date: 20210419
  Serious: Yes (Other)
  Sender: FDA-Public Use
  Company Number: CA-BAUSCH-BL-2020-037950

PATIENT
  Sex: Male

DRUGS (1)
  1. EFUDEX [Suspect]
     Active Substance: FLUOROURACIL
     Indication: BASAL CELL CARCINOMA
     Dosage: STARTED 3 WEEKS AGO PRIOR TO DATE OF INITIAL REPORT
     Route: 061
     Dates: start: 202011, end: 202101

REACTIONS (3)
  - Condition aggravated [Recovering/Resolving]
  - Haemorrhage [Recovering/Resolving]
  - Basal cell carcinoma [Recovering/Resolving]

NARRATIVE: CASE EVENT DATE: 2020
